FAERS Safety Report 17072149 (Version 1)
Quarter: 2019Q4

REPORT INFORMATION
  Report Type: Report from Study
  Country: AR (occurrence: AR)
  Receive Date: 20191125
  Receipt Date: 20191125
  Transmission Date: 20200122
  Serious: Yes (Death, Hospitalization, Other)
  Sender: FDA-Public Use
  Company Number: NVSC2019AR036582

PATIENT
  Age: 81 Year
  Sex: Male

DRUGS (1)
  1. SANDOSTATIN LAR DEPOT [Suspect]
     Active Substance: OCTREOTIDE ACETATE
     Indication: NEUROENDOCRINE TUMOUR
     Dosage: 30 MG, Q4W (EVERY 28 DAYS)
     Route: 065
     Dates: start: 20151029, end: 201908

REACTIONS (8)
  - Tremor [Fatal]
  - Weight decreased [Unknown]
  - Diabetes mellitus [Unknown]
  - Jaundice [Fatal]
  - Depression [Fatal]
  - Neuroendocrine tumour [Fatal]
  - Sepsis [Fatal]
  - Malignant neoplasm progression [Fatal]

NARRATIVE: CASE EVENT DATE: 201908
